FAERS Safety Report 7096001-8 (Version None)
Quarter: 2010Q4

REPORT INFORMATION
  Report Type: 
  Country: None (occurrence: None)
  Receive Date: 20101111
  Receipt Date: 20090504
  Transmission Date: 20110411
  Serious: No
  Sender: FDA-Public Use
  Company Number: US-KINGPHARMUSA00001-K200900536

PATIENT
  Age: 65 Year
  Sex: Female
  Weight: 52.154 kg

DRUGS (5)
  1. LEVOXYL [Suspect]
     Indication: THYROID DISORDER
     Dosage: 137 MCG, QD
     Route: 048
     Dates: start: 20080101, end: 20080101
  2. LEVOXYL [Suspect]
     Dosage: 125 MCG, QD
     Route: 048
     Dates: start: 20080101, end: 20090301
  3. LEVOXYL [Suspect]
     Dosage: 112 MCG, QD
     Route: 048
     Dates: start: 20090301
  4. ACETAMINOPHEN AND HYDROCODONE BITARTRATE [Concomitant]
     Indication: BACK PAIN
     Dosage: UNK
  5. PREVACID [Concomitant]
     Indication: GASTRIC DISORDER
     Dosage: UNK

REACTIONS (5)
  - FEELING ABNORMAL [None]
  - FEELING COLD [None]
  - FEELING HOT [None]
  - MALAISE [None]
  - NERVOUSNESS [None]
